FAERS Safety Report 7141521-0 (Version None)
Quarter: 2010Q4

REPORT INFORMATION
  Report Type: 
  Country: None (occurrence: None)
  Receive Date: 20101202
  Receipt Date: 20101202
  Transmission Date: 20110411
  Serious: Yes (Other)
  Sender: FDA-Public Use
  Company Number: None

PATIENT
  Sex: Female

DRUGS (1)
  1. BUPROPRION 150 MG [Suspect]
     Indication: MAJOR DEPRESSION
     Dosage: 3 QD PO
     Dates: start: 20080101

REACTIONS (7)
  - DISTURBANCE IN ATTENTION [None]
  - DRUG INEFFECTIVE [None]
  - FEELING GUILTY [None]
  - FEELINGS OF WORTHLESSNESS [None]
  - INSOMNIA [None]
  - LETHARGY [None]
  - SUICIDAL IDEATION [None]
